FAERS Safety Report 8971490 (Version 1)
Quarter: 2012Q4

REPORT INFORMATION
  Report Type: 
  Country: TW (occurrence: TW)
  Receive Date: 20121218
  Receipt Date: 20121218
  Transmission Date: 20130627
  Serious: Yes (Death)
  Sender: FDA-Public Use
  Company Number: PHHY2012TW114342

PATIENT
  Age: 68 Year
  Sex: Male

DRUGS (1)
  1. TEGRETOL [Suspect]
     Indication: NERVE COMPRESSION
     Dosage: 200 mg
     Route: 048
     Dates: start: 20110706, end: 20110717

REACTIONS (8)
  - Stevens-Johnson syndrome [Fatal]
  - Acute respiratory failure [Fatal]
  - Coma [Fatal]
  - Sepsis [Fatal]
  - Skin exfoliation [Fatal]
  - Rash erythematous [Fatal]
  - Rash vesicular [Fatal]
  - Rash pustular [Fatal]
